FAERS Safety Report 15847575 (Version 1)
Quarter: 2019Q1

REPORT INFORMATION
  Report Type: Spontaneous
  Country: HU (occurrence: HU)
  Receive Date: 20190121
  Receipt Date: 20190121
  Transmission Date: 20190417
  Serious: Yes (Death, Hospitalization)
  Sender: FDA-Public Use
  Company Number: HU-ROCHE-2246481

PATIENT
  Age: 58 Year
  Sex: Male

DRUGS (1)
  1. TECENTRIQ [Suspect]
     Active Substance: ATEZOLIZUMAB
     Indication: TRANSITIONAL CELL CARCINOMA
     Dosage: START DATE: 20/DEC/2018
     Route: 042

REACTIONS (5)
  - Vomiting [Unknown]
  - Death [Fatal]
  - Asthenia [Unknown]
  - Dehydration [Unknown]
  - Malnutrition [Unknown]

NARRATIVE: CASE EVENT DATE: 201812
